FAERS Safety Report 6210644-2 (Version None)
Quarter: 2009Q2

REPORT INFORMATION
  Report Type: 
  Country: None (occurrence: None)
  Receive Date: 20090528
  Receipt Date: 20090515
  Transmission Date: 20091009
  Serious: Yes (Hospitalization)
  Sender: FDA-Public Use
  Company Number: 235522K09USA

PATIENT
  Age: 37 Year
  Sex: Female
  Weight: 84 kg

DRUGS (7)
  1. REBIF [Suspect]
     Indication: MULTIPLE SCLEROSIS
     Dosage: 44 MCG, 3 IN 1 WEEKS, SUBCUTANEOUS
     Route: 058
     Dates: start: 20090309
  2. DILANTIN (PHENYTOIN /00017401/) [Concomitant]
  3. LORTAB (VICODIN) [Concomitant]
  4. KLONOPIN [Concomitant]
  5. AMITRIPTYLINE HCL [Concomitant]
  6. SINGULAIR (MONTELUKAST /01362601) [Concomitant]
  7. CARISOPRODOL (CARISOPRODOL) [Concomitant]

REACTIONS (3)
  - ASTHMA [None]
  - DYSGEUSIA [None]
  - FEELING ABNORMAL [None]
